FAERS Safety Report 4490501-2 (Version None)
Quarter: 2004Q4

REPORT INFORMATION
  Report Type: 
  Country: None (occurrence: None)
  Receive Date: 20041028
  Receipt Date: 20041014
  Transmission Date: 20050328
  Serious: Yes (Hospitalization)
  Sender: FDA-Public Use
  Company Number: 2004-BP-09934BP

PATIENT
  Sex: Female

DRUGS (9)
  1. SPIRIVA [Suspect]
     Indication: CHRONIC OBSTRUCTIVE AIRWAYS DISEASE
     Dosage: 18 MCG (18 MCG), IH
     Route: 055
     Dates: start: 20040701
  2. BEXTRA [Suspect]
     Indication: ARTHRITIS
     Dosage: PO
     Route: 048
  3. WELLBUTRIN [Suspect]
     Indication: SMOKING CESSATION THERAPY
     Dosage: PO
     Route: 048
  4. FORADIL [Suspect]
     Indication: CHRONIC OBSTRUCTIVE AIRWAYS DISEASE
     Dosage: IH
     Route: 055
  5. PREDNISONE [Concomitant]
  6. FOSAMAX [Concomitant]
  7. FOLTZ (FOLIC ACID) [Concomitant]
  8. GLUCOSAMINE [Concomitant]
  9. DUONEB [Concomitant]

REACTIONS (3)
  - LIMB INJURY [None]
  - OEDEMA PERIPHERAL [None]
  - PLATELET COUNT DECREASED [None]
